FAERS Safety Report 9302667 (Version 1)
Quarter: 2013Q2

REPORT INFORMATION
  Report Type: Spontaneous
  Country: US (occurrence: US)
  Receive Date: 20130522
  Receipt Date: 20130522
  Transmission Date: 20140414
  Serious: No
  Sender: FDA-Public Use
  Company Number: US-BAYER-2013-063412

PATIENT
  Age: 38 Year
  Sex: Female
  Weight: 68.93 kg

DRUGS (2)
  1. ALEVE TABLET [Suspect]
     Dosage: 1 DF,OTHER FREQUENCY
     Route: 048
     Dates: start: 2002, end: 20130518
  2. ALEVE TABLET [Suspect]
     Dosage: 1 DF, OTHER FREQUENCY
     Route: 048
     Dates: start: 2002, end: 201305

REACTIONS (2)
  - Drug ineffective [None]
  - Incorrect drug administration duration [None]
